FAERS Safety Report 21853442 (Version 2)
Quarter: 2023Q1

REPORT INFORMATION
  Report Type: Report from Study
  Country: MX (occurrence: MX)
  Receive Date: 20230112
  Receipt Date: 20230211
  Transmission Date: 20230417
  Serious: Yes (Death, Hospitalization, Other)
  Sender: FDA-Public Use
  Company Number: MX-002147023-NVSC2023MX006282

PATIENT
  Sex: Female
  Weight: 54 kg

DRUGS (3)
  1. METFORMIN HYDROCHLORIDE\VILDAGLIPTIN [Suspect]
     Active Substance: METFORMIN HYDROCHLORIDE\VILDAGLIPTIN
     Indication: Diabetes mellitus
     Dosage: 1 DOSAGE FORM (BY MOUTH, WITH AN EMPTY STOMACH)
     Route: 048
     Dates: start: 20221209, end: 20221226
  2. METFORMIN HYDROCHLORIDE\VILDAGLIPTIN [Suspect]
     Active Substance: METFORMIN HYDROCHLORIDE\VILDAGLIPTIN
     Indication: Cardiac disorder
  3. EXFORGE HCT [Suspect]
     Active Substance: AMLODIPINE BESYLATE\HYDROCHLOROTHIAZIDE\VALSARTAN
     Indication: Hypertension
     Dosage: 0.5 DOSAGE FORM, QD (BY MOUTH)
     Route: 048
     Dates: start: 20221209, end: 20221226

REACTIONS (9)
  - Cardiac failure [Fatal]
  - Hepatic failure [Fatal]
  - Pulmonary oedema [Fatal]
  - Fluid retention [Fatal]
  - Anaemia [Fatal]
  - Hypotension [Unknown]
  - Asthenia [Unknown]
  - Wrong technique in product usage process [Unknown]
  - Product use in unapproved indication [Unknown]
